FAERS Safety Report 24651087 (Version 1)
Quarter: 2024Q4

REPORT INFORMATION
  Report Type: Spontaneous
  Country: US (occurrence: US)
  Receive Date: 20241122
  Receipt Date: 20241122
  Transmission Date: 20250115
  Serious: No
  Sender: WAYLIS THERAPEUTICS LLC
  Company Number: US-WT-2024-247118

PATIENT

DRUGS (1)
  1. LUNESTA [Suspect]
     Active Substance: ESZOPICLONE

REACTIONS (1)
  - Musculoskeletal chest pain [Unknown]
